FAERS Safety Report 5307001-X (Version None)
Quarter: 2007Q2

REPORT INFORMATION
  Report Type: 
  Country: None (occurrence: None)
  Receive Date: 20070425
  Receipt Date: 20070417
  Transmission Date: 20071010
  Serious: Yes (Other)
  Sender: FDA-Public Use
  Company Number: GB-ELI_LILLY_AND_COMPANY-GB200704003779

PATIENT
  Age: 30 Year
  Sex: Female

DRUGS (2)
  1. ZYPREXA [Suspect]
     Indication: PSYCHOTIC DISORDER
     Dosage: 20 MG, UNK
     Route: 048
     Dates: start: 20061223
  2. LORAZEPAM [Concomitant]
     Indication: PSYCHOTIC DISORDER
     Route: 048
     Dates: start: 20061223

REACTIONS (4)
  - AGITATION [None]
  - ANXIETY [None]
  - HYPERPROLACTINAEMIA [None]
  - RESTLESS LEGS SYNDROME [None]
